FAERS Safety Report 21594337 (Version 2)
Quarter: 2023Q1

REPORT INFORMATION
  Report Type: Spontaneous
  Country: US (occurrence: None)
  Receive Date: 20221115
  Receipt Date: 20230321
  Transmission Date: 20230418
  Serious: No
  Sender: FDA-Public Use
  Company Number: US-ROCHE-3157239

PATIENT
  Sex: Male
  Weight: 85.352 kg

DRUGS (7)
  1. VABYSMO [Suspect]
     Active Substance: FARICIMAB-SVOA
     Indication: Central serous chorioretinopathy
     Dosage: YES
     Route: 050
     Dates: start: 202207
  2. AVASTIN [Suspect]
     Active Substance: BEVACIZUMAB
     Indication: Central serous chorioretinopathy
     Dosage: EVERY 4-5 WEEKS ;ONGOING: NO
     Route: 050
     Dates: end: 202206
  3. EYLEA [Concomitant]
     Active Substance: AFLIBERCEPT
  4. METOPROLOL SUCCINATE [Concomitant]
     Active Substance: METOPROLOL SUCCINATE
  5. ROSUVASTATIN [Concomitant]
     Active Substance: ROSUVASTATIN
  6. ASPIRIN [Concomitant]
     Active Substance: ASPIRIN
  7. AMOXICILLIN [Concomitant]
     Active Substance: AMOXICILLIN

REACTIONS (3)
  - Sinus headache [Unknown]
  - Off label use [Unknown]
  - Off label use [Unknown]
